FAERS Safety Report 8448519-0 (Version None)
Quarter: 2012Q2

REPORT INFORMATION
  Report Type: 
  Country: None (occurrence: None)
  Receive Date: 20120619
  Receipt Date: 20120618
  Transmission Date: 20120825
  Serious: Yes (Hospitalization, Other)
  Sender: FDA-Public Use
  Company Number: US-PFIZER INC-2012138347

PATIENT
  Sex: Female

DRUGS (20)
  1. SYMBICORT [Suspect]
     Dosage: 80/4.5 MCG, 2 PUFFS TWO TIMES
     Route: 045
     Dates: start: 20120213
  2. PLAVIX [Concomitant]
     Dosage: 75 MG, 1X/DAY
     Route: 048
  3. ZETIA [Concomitant]
     Dosage: 10 MG, 1X/DAY
     Route: 048
  4. ACETAMINOPHEN [Concomitant]
     Dosage: 500 MG, 1X/DAY
     Route: 048
  5. ASPIRIN [Concomitant]
     Dosage: 1 DF, 1X/DAY
     Route: 048
  6. SERTRALINE [Concomitant]
     Dosage: 50 MG, 1X/DAY
     Route: 048
  7. CALCIUM CARBONATE/COLECALCIFEROL [Concomitant]
     Dosage: 2000 IU, 1X/DAY
     Route: 048
  8. ATENOLOL [Suspect]
     Dosage: 25 MG, 1X/DAY
     Route: 048
     Dates: start: 20001205
  9. LISINOPRIL [Suspect]
     Indication: HYPERTENSION
     Dosage: 10 MG, 1X/DAY
     Route: 048
     Dates: start: 20070925
  10. FENOFIBRATE [Concomitant]
     Dosage: 134 MG, 1X/DAY
     Route: 048
  11. LOVAZA [Concomitant]
     Dosage: 1 DF, 1X/DAY
     Route: 048
  12. LOPERAMIDE HYDROCHLORIDE [Concomitant]
     Dosage: 1 DF, AS NEEDED
     Route: 048
  13. CODEINE W/GUAIFENESIN [Concomitant]
     Dosage: 5 ML, 3X/DAY
     Route: 048
  14. SYMBICORT [Suspect]
     Indication: CHRONIC OBSTRUCTIVE PULMONARY DISEASE
     Dosage: 80/4.5 MCG, 2 PUFFS TWO TIMES
     Route: 055
     Dates: start: 20110429
  15. CALCIUM [Concomitant]
     Dosage: 1 DF, 1X/DAY
     Route: 048
  16. DIPHENHYDRAMINE [Concomitant]
     Dosage: 2 DF, 4X/DAY
     Route: 048
  17. PSEUDOEPHEDRINE [Concomitant]
     Dosage: 5 ML BY MOUTH THREE TIMES A DAY
     Route: 048
  18. LEVOTHYROXINE [Concomitant]
     Dosage: 50 UG, 1X/DAY
     Route: 048
  19. DEXILANT [Concomitant]
     Indication: GASTROOESOPHAGEAL REFLUX DISEASE
     Dosage: 30 MG, 1X/DAY
     Route: 048
  20. LEVALBUTEROL HYDROCHLORIDE [Concomitant]
     Dosage: 0.63 MG/3 ML, EVERY THREE HOURS AS NEEDED

REACTIONS (19)
  - ANGINA PECTORIS [None]
  - PELVIC PAIN [None]
  - ARTHROPATHY [None]
  - HYPOTHYROIDISM [None]
  - ESSENTIAL HYPERTENSION [None]
  - CYSTOCELE [None]
  - CHOLELITHIASIS [None]
  - CIRCUMSTANCE OR INFORMATION CAPABLE OF LEADING TO MEDICATION ERROR [None]
  - BRONCHOPNEUMONIA [None]
  - CORONARY ARTERY DISEASE [None]
  - SPINAL OSTEOARTHRITIS [None]
  - BRONCHITIS CHRONIC [None]
  - DIVERTICULUM [None]
  - RHINITIS ALLERGIC [None]
  - HYPERLIPIDAEMIA [None]
  - VITAMIN D DEFICIENCY [None]
  - CHRONIC OBSTRUCTIVE PULMONARY DISEASE [None]
  - GASTROOESOPHAGEAL REFLUX DISEASE [None]
  - DEPRESSION [None]
